FAERS Safety Report 11276010 (Version 1)
Quarter: 2015Q3

REPORT INFORMATION
  Report Type: Spontaneous
  Country: US (occurrence: US)
  Receive Date: 20150716
  Receipt Date: 20150716
  Transmission Date: 20151125
  Serious: Yes (Other)
  Sender: FDA-Public Use
  Company Number: US-ASTRAZENECA-2015SE67986

PATIENT
  Sex: Male
  Weight: 92.1 kg

DRUGS (14)
  1. MIRTAZAPINE. [Concomitant]
     Active Substance: MIRTAZAPINE
     Indication: DEPRESSION
     Route: 048
  2. PRAXAXA [Concomitant]
     Route: 048
  3. MOVANTIK [Suspect]
     Active Substance: NALOXEGOL OXALATE
     Indication: CONSTIPATION
     Route: 048
     Dates: start: 201505
  4. OMEPRAZOLE MAGNESIUM. [Suspect]
     Active Substance: OMEPRAZOLE MAGNESIUM
     Route: 048
  5. MORPHINE [Concomitant]
     Active Substance: MORPHINE
     Indication: BONE CANCER
     Dosage: 1/2 TABLET IN THE MORNING AND 2 TABLETS AT NIGHT
     Route: 048
     Dates: start: 201506
  6. NORTRIPTYLINE [Concomitant]
     Active Substance: NORTRIPTYLINE
     Route: 048
  7. LEVOTHYROXIN [Concomitant]
     Active Substance: LEVOTHYROXINE
     Indication: THYROID DISORDER
     Route: 048
  8. TUDORZA PRESSAIR [Suspect]
     Active Substance: ACLIDINIUM BROMIDE
     Route: 055
     Dates: start: 2015
  9. SYMVASTATIN [Concomitant]
     Indication: BLOOD CHOLESTEROL ABNORMAL
     Route: 048
  10. CYMBALTA [Concomitant]
     Active Substance: DULOXETINE HYDROCHLORIDE
     Indication: DEPRESSION
     Dosage: 60, DAILY
     Route: 048
  11. FENTANYL. [Concomitant]
     Active Substance: FENTANYL
  12. MORPHINE [Concomitant]
     Active Substance: MORPHINE
     Indication: BONE CANCER
     Route: 048
     Dates: start: 20150630
  13. WELLBUTRIN [Concomitant]
     Active Substance: BUPROPION HYDROCHLORIDE
     Indication: DEPRESSION
  14. CARVEDILOL. [Concomitant]
     Active Substance: CARVEDILOL
     Indication: CARDIAC DISORDER
     Route: 048

REACTIONS (10)
  - Prostate cancer [Unknown]
  - Hypoacusis [Unknown]
  - Arthritis [Unknown]
  - Atrial fibrillation [Unknown]
  - Intentional product misuse [Unknown]
  - Bone cancer [Unknown]
  - Lung neoplasm malignant [Unknown]
  - Osteoporosis [Unknown]
  - Body height decreased [Unknown]
  - Blood pressure increased [Unknown]
